FAERS Safety Report 26027626 (Version 1)
Quarter: 2025Q4

REPORT INFORMATION
  Report Type: Spontaneous
  Country: CN (occurrence: CN)
  Receive Date: 20251111
  Receipt Date: 20251111
  Transmission Date: 20260117
  Serious: Yes (Hospitalization, Disabling)
  Sender: PFIZER
  Company Number: CN-PFIZER INC-PV202500131526

PATIENT
  Age: 76 Year
  Sex: Male

DRUGS (1)
  1. CRIZOTINIB [Suspect]
     Active Substance: CRIZOTINIB
     Indication: Lung neoplasm malignant
     Dosage: 250 MG, 2X/DAY
     Route: 048
     Dates: start: 20250715, end: 20251002

REACTIONS (4)
  - Myocarditis [Recovering/Resolving]
  - Myocardial injury [Recovering/Resolving]
  - Respiratory failure [Recovering/Resolving]
  - Interstitial lung disease [Recovering/Resolving]

NARRATIVE: CASE EVENT DATE: 20250928
